FAERS Safety Report 6265126-9 (Version None)
Quarter: 2009Q3

REPORT INFORMATION
  Report Type: 
  Country: None (occurrence: None)
  Receive Date: 20090713
  Receipt Date: 20090702
  Transmission Date: 20100115
  Serious: Yes (Other)
  Sender: FDA-Public Use
  Company Number: CA-JNJFOC-20090701454

PATIENT
  Sex: Female
  Weight: 74 kg

DRUGS (4)
  1. REMICADE [Suspect]
     Dosage: TOTAL OF 55 DOSES
     Route: 042
  2. REMICADE [Suspect]
     Route: 042
  3. REMICADE [Suspect]
     Indication: RHEUMATOID ARTHRITIS
     Route: 042
  4. METOPROLOL TARTRATE [Concomitant]

REACTIONS (4)
  - COUGH [None]
  - DIZZINESS [None]
  - DYSKINESIA [None]
  - URINARY TRACT INFECTION [None]
